FAERS Safety Report 5129479-7 (Version None)
Quarter: 2006Q4

REPORT INFORMATION
  Report Type: 
  Country: None (occurrence: None)
  Receive Date: 20061018
  Receipt Date: 20051109
  Transmission Date: 20070319
  Serious: Yes (Other)
  Sender: FDA-Public Use
  Company Number: 2005UW17024

PATIENT
  Age: 64 Year
  Sex: Female
  Weight: 78.9 kg

DRUGS (14)
  1. ARIMIDEX [Suspect]
     Indication: BREAST CANCER
     Route: 048
     Dates: start: 20050501
  2. CELEBREX [Concomitant]
  3. AMITRIPTYLINE HCL [Concomitant]
  4. FOSAMAX [Concomitant]
  5. CHOLESTEROL MEDICATION [Concomitant]
  6. COREG [Concomitant]
  7. COZAAR [Concomitant]
  8. TOPAMAX [Concomitant]
  9. ASTELIN [Concomitant]
     Route: 045
  10. MAGNESIUM [Concomitant]
  11. CALCIUM WITH VITAMIN D [Concomitant]
  12. GLUCOSAMINE WITH CHONDROITIN [Concomitant]
  13. PRILOSEC [Concomitant]
     Route: 048
  14. EFFEXOR XR [Concomitant]

REACTIONS (8)
  - ARTHRITIS [None]
  - CARDIAC FAILURE [None]
  - DRY MOUTH [None]
  - HOT FLUSH [None]
  - PRURITUS [None]
  - RASH [None]
  - THYROID FUNCTION TEST ABNORMAL [None]
  - WEIGHT INCREASED [None]
